FAERS Safety Report 18109970 (Version 2)
Quarter: 2020Q3

REPORT INFORMATION
  Report Type: Spontaneous
  Country: IL (occurrence: IL)
  Receive Date: 20200804
  Receipt Date: 20200805
  Transmission Date: 20201103
  Serious: No
  Sender: FDA-Public Use
  Company Number: IL-SA-2020SA197387

PATIENT

DRUGS (3)
  1. AMBIEN CR [Suspect]
     Active Substance: ZOLPIDEM TARTRATE
     Indication: INSOMNIA
     Dosage: UNK
     Route: 065
     Dates: start: 20200726
  2. MIRO [MIRTAZAPINE] [Concomitant]
     Indication: ANXIETY
     Dosage: UNK
     Route: 065
  3. MIRO [MIRTAZAPINE] [Concomitant]
     Indication: DEPRESSION

REACTIONS (4)
  - Urinary incontinence [Unknown]
  - Insomnia [Not Recovered/Not Resolved]
  - Drug ineffective [Unknown]
  - Fatigue [Unknown]

NARRATIVE: CASE EVENT DATE: 20200726
